FAERS Safety Report 10549470 (Version 6)
Quarter: 2019Q1

REPORT INFORMATION
  Report Type: Report from Study
  Country: AU (occurrence: AU)
  Receive Date: 20141028
  Receipt Date: 20190125
  Transmission Date: 20190417
  Serious: Yes (Death, Hospitalization)
  Sender: FDA-Public Use
  Company Number: PHHO2014AU005976

PATIENT
  Age: 59 Year
  Sex: Female
  Weight: 65.1 kg

DRUGS (2)
  1. EXEMESTANE. [Suspect]
     Active Substance: EXEMESTANE
     Indication: BREAST CANCER METASTATIC
     Dosage: 25 MG, OD
     Route: 048
     Dates: start: 20140218, end: 20140902
  2. EVEROLIMUS. [Suspect]
     Active Substance: EVEROLIMUS
     Indication: BREAST CANCER METASTATIC
     Dosage: 10 MG, OD
     Route: 048
     Dates: start: 20140218, end: 20140902

REACTIONS (11)
  - Anaemia [Recovered/Resolved]
  - Melaena [Recovered/Resolved]
  - Sepsis [Recovered/Resolved]
  - Acute myocardial infarction [Recovered/Resolved]
  - Death [Fatal]
  - Uterine polyp [Recovered/Resolved]
  - Urinary tract infection [Recovered/Resolved]
  - Acute kidney injury [Not Recovered/Not Resolved]
  - Renal impairment [Not Recovered/Not Resolved]
  - Troponin T increased [Recovered/Resolved]
  - Urosepsis [Recovered/Resolved]

NARRATIVE: CASE EVENT DATE: 20140417
